FAERS Safety Report 5104576-0 (Version None)
Quarter: 2006Q3

REPORT INFORMATION
  Report Type: 
  Country: None (occurrence: None)
  Receive Date: 20060914
  Receipt Date: 20050729
  Transmission Date: 20061208
  Serious: No
  Sender: FDA-Public Use
  Company Number: US-BRISTOL-MYERS SQUIBB COMPANY-13057229

PATIENT
  Age: 73 Year
  Sex: Male
  Weight: 60 kg

DRUGS (5)
  1. BUSPAR [Suspect]
     Indication: PSYCHOMOTOR HYPERACTIVITY
     Route: 048
     Dates: start: 19990101
  2. VIAGRA [Concomitant]
  3. ROLAIDS [Concomitant]
  4. NABUMETONE [Concomitant]
  5. ARICEPT [Concomitant]

REACTIONS (4)
  - ABNORMAL DREAMS [None]
  - BALANCE DISORDER [None]
  - DIZZINESS [None]
  - EJACULATION FAILURE [None]
